FAERS Safety Report 10201354 (Version 1)
Quarter: 2014Q2

REPORT INFORMATION
  Report Type: Spontaneous
  Country: DK (occurrence: DK)
  Receive Date: 20140528
  Receipt Date: 20140528
  Transmission Date: 20141212
  Serious: Yes (Hospitalization)
  Sender: FDA-Public Use
  Company Number: DK-ASTRAZENECA-2014SE35069

PATIENT
  Age: 21926 Day
  Sex: Male

DRUGS (4)
  1. BRILIQUE [Suspect]
     Indication: ACUTE MYOCARDIAL INFARCTION
     Route: 048
     Dates: start: 20140219
  2. HJERTEMAGNYL [Suspect]
     Indication: THROMBOSIS PROPHYLAXIS
     Route: 048
     Dates: start: 20140219, end: 20140227
  3. IMDUR [Concomitant]
     Indication: ANGINA PECTORIS
  4. ZARATOR [Concomitant]
     Indication: HYPERCHOLESTEROLAEMIA

REACTIONS (3)
  - Haemorrhagic anaemia [Not Recovered/Not Resolved]
  - Dizziness [Unknown]
  - Vertigo [Unknown]
